FAERS Safety Report 12573218 (Version 1)
Quarter: 2016Q3

REPORT INFORMATION
  Report Type: Spontaneous
  Country: US (occurrence: None)
  Receive Date: 20160719
  Receipt Date: 20160719
  Transmission Date: 20161109
  Serious: Yes (Life-Threatening, Hospitalization)
  Sender: FDA-Public Use
  Company Number: None

PATIENT
  Age: 65 Year
  Sex: Male
  Weight: 67.3 kg

DRUGS (10)
  1. LORAZEPAM (ATIVAN) [Concomitant]
  2. CELEXA [Concomitant]
     Active Substance: CITALOPRAM HYDROBROMIDE
  3. PEMBROLIZUMAB, 100MG/4ML MERCK [Suspect]
     Active Substance: PEMBROLIZUMAB
     Indication: MESOTHELIOMA
     Route: 041
     Dates: start: 20150923, end: 20160622
  4. PRILOSEC [Concomitant]
     Active Substance: OMEPRAZOLE MAGNESIUM
  5. MELATONIN [Concomitant]
     Active Substance: MELATONIN
  6. ZOFRAN [Concomitant]
     Active Substance: ONDANSETRON HYDROCHLORIDE
  7. PROCHLORPERAZINE (COMPAZINE) [Concomitant]
  8. DRONABINOL (MARINOL) [Concomitant]
  9. ZYPREXA [Concomitant]
     Active Substance: OLANZAPINE
  10. ALLOPURINOL (ZYLOPRIM) [Concomitant]

REACTIONS (2)
  - Bone marrow failure [None]
  - Anaemia [None]

NARRATIVE: CASE EVENT DATE: 20160712
